FAERS Safety Report 8569052-1 (Version None)
Quarter: 2012Q3

REPORT INFORMATION
  Report Type: 
  Country: None (occurrence: None)
  Receive Date: 20120803
  Receipt Date: 20120424
  Transmission Date: 20120928
  Serious: No
  Sender: FDA-Public Use
  Company Number: US-ABBOTT-12P-163-0929017-00

PATIENT
  Weight: 103.97 kg

DRUGS (8)
  1. VITAMIN D [Concomitant]
     Indication: PRODUCT USED FOR UNKNOWN INDICATION
     Route: 048
  2. ASPIRIN [Concomitant]
     Indication: PRODUCT USED FOR UNKNOWN INDICATION
     Route: 048
  3. UNKNOWN CREAM [Concomitant]
     Indication: PSORIASIS
     Route: 061
  4. NIASPAN [Suspect]
     Indication: BLOOD TRIGLYCERIDES INCREASED
  5. MULTI-VITAMIN [Concomitant]
     Indication: PRODUCT USED FOR UNKNOWN INDICATION
     Route: 048
  6. NIASPAN [Suspect]
     Indication: LOW DENSITY LIPOPROTEIN DECREASED
     Dosage: AT BEDTIME
     Route: 048
     Dates: start: 20120325
  7. NIASPAN [Suspect]
     Indication: BLOOD CHOLESTEROL INCREASED
  8. ASPIRIN [Concomitant]
     Route: 048

REACTIONS (2)
  - FLUSHING [None]
  - PRURITUS [None]
